FAERS Safety Report 5530691-3 (Version None)
Quarter: 2007Q4

REPORT INFORMATION
  Report Type: 
  Country: None (occurrence: None)
  Receive Date: 20071128
  Receipt Date: 20071128
  Transmission Date: 20080405
  Serious: Yes (Life-Threatening)
  Sender: FDA-Public Use
  Company Number: None

PATIENT
  Age: 37 Year
  Sex: Female
  Weight: 59 kg

DRUGS (1)
  1. SOLU-MEDROL [Suspect]
     Indication: MULTIPLE SCLEROSIS
     Dosage: 1 GM IV Q MONTH
     Route: 042
     Dates: start: 20070911

REACTIONS (10)
  - BLOOD PRESSURE INCREASED [None]
  - DYSPHAGIA [None]
  - EYE SWELLING [None]
  - HEART RATE INCREASED [None]
  - INFUSION RELATED REACTION [None]
  - LIP SWELLING [None]
  - PRURITUS [None]
  - RASH [None]
  - SWELLING FACE [None]
  - URTICARIA [None]
